FAERS Safety Report 25454382 (Version 2)
Quarter: 2025Q4

REPORT INFORMATION
  Report Type: Report from Study
  Country: US (occurrence: US)
  Receive Date: 20250619
  Receipt Date: 20251022
  Transmission Date: 20260118
  Serious: Yes (Other)
  Sender: MERCK SHARP & DOHME LLC
  Company Number: US-009507513-2296430

PATIENT
  Age: 53 Year
  Sex: Male
  Weight: 104.33 kg

DRUGS (17)
  1. WINREVAIR [Suspect]
     Active Substance: SOTATERCEPT-CSRK
     Indication: Pulmonary arterial hypertension
     Dosage: DOSE ALSO REPORTED AS: 1.4 ML
     Route: 058
     Dates: start: 20241211
  2. WINREVAIR [Suspect]
     Active Substance: SOTATERCEPT-CSRK
  3. WINREVAIR [Suspect]
     Active Substance: SOTATERCEPT-CSRK
  4. WINREVAIR [Suspect]
     Active Substance: SOTATERCEPT-CSRK
  5. VELETRI [Concomitant]
     Active Substance: EPOPROSTENOL
     Dosage: DOSAGE: 18 NG/KG
     Route: 042
  6. SPIRONOLACTONE [Concomitant]
     Active Substance: SPIRONOLACTONE
  7. TORSEMIDE [Concomitant]
     Active Substance: TORSEMIDE
  8. ADEMPAS [Concomitant]
     Active Substance: RIOCIGUAT
     Dosage: TIME INTERVAL: 0.33333333 DAYS
  9. VITAMIN D3 [Concomitant]
     Active Substance: CHOLECALCIFEROL
  10. EPA [Concomitant]
  11. EFAVIRENZ\EMTRICITABINE\TENOFOVIR [Concomitant]
     Active Substance: EFAVIRENZ\EMTRICITABINE\TENOFOVIR
     Dosage: 1 TABLET, DAILY
  12. IRON [Concomitant]
     Active Substance: IRON
  13. LISINOPRIL [Concomitant]
     Active Substance: LISINOPRIL
  14. PROTONIX [Concomitant]
     Active Substance: PANTOPRAZOLE SODIUM
  15. POTASSIUM [Concomitant]
     Active Substance: POTASSIUM
  16. AMBRISENTAN [Concomitant]
     Active Substance: AMBRISENTAN
  17. ORENITRAM [Suspect]
     Active Substance: TREPROSTINIL
     Dates: start: 20250904

REACTIONS (4)
  - Pericardial effusion [Recovering/Resolving]
  - Dyspnoea exertional [Unknown]
  - Headache [Recovered/Resolved]
  - Nausea [Recovering/Resolving]

NARRATIVE: CASE EVENT DATE: 20250407
